FAERS Safety Report 19745977 (Version 1)
Quarter: 2021Q3

REPORT INFORMATION
  Report Type: Spontaneous
  Country: US (occurrence: US)
  Receive Date: 20210824
  Receipt Date: 20210824
  Transmission Date: 20211014
  Serious: No
  Sender: FDA-Public Use
  Company Number: None

PATIENT
  Age: 18 Year
  Sex: Female

DRUGS (3)
  1. ENVARSUS XR [Concomitant]
     Active Substance: TACROLIMUS
     Dates: start: 20191226
  2. ENVARSUS XR [Concomitant]
     Active Substance: TACROLIMUS
     Dates: start: 20191226
  3. ATORVASTATIN [Suspect]
     Active Substance: ATORVASTATIN
     Dates: start: 20190801

REACTIONS (2)
  - Muscle spasms [None]
  - Myalgia [None]

NARRATIVE: CASE EVENT DATE: 20210824
